FAERS Safety Report 19114510 (Version 1)
Quarter: 2021Q2

REPORT INFORMATION
  Report Type: Spontaneous
  Country: US (occurrence: US)
  Receive Date: 20210408
  Receipt Date: 20210408
  Transmission Date: 20210717
  Serious: No
  Sender: FDA-Public Use
  Company Number: US-PERRIGO-20US004045

PATIENT
  Age: 69 Year
  Sex: Male
  Weight: 63.49 kg

DRUGS (1)
  1. ACETAMINOPHEN. [Suspect]
     Active Substance: ACETAMINOPHEN
     Indication: PAIN
     Dosage: 1300 MG, EVERY 4 HOURS
     Route: 048
     Dates: start: 20200310, end: 20200311

REACTIONS (3)
  - Flushing [Recovered/Resolved]
  - Agitation [Recovered/Resolved]
  - Inappropriate schedule of product administration [Recovered/Resolved]

NARRATIVE: CASE EVENT DATE: 20200310
